FAERS Safety Report 11897167 (Version 1)
Quarter: 2016Q1

REPORT INFORMATION
  Report Type: Spontaneous
  Country: CA (occurrence: CA)
  Receive Date: 20160107
  Receipt Date: 20160107
  Transmission Date: 20160526
  Serious: Yes (Other)
  Sender: FDA-Public Use
  Company Number: CA-PFIZER INC-2015478623

PATIENT
  Age: 65 Year
  Sex: Female
  Weight: 91 kg

DRUGS (4)
  1. RABEPRAZOLE [Concomitant]
     Active Substance: RABEPRAZOLE
     Dosage: 20 MG, 1X/DAY
     Route: 048
     Dates: start: 2014
  2. VAGIFEM [Concomitant]
     Active Substance: ESTRADIOL
     Dosage: 10 UG, 2X/WEEK
     Route: 048
     Dates: start: 2009
  3. TOVIAZ [Suspect]
     Active Substance: FESOTERODINE FUMARATE
     Indication: HYPERTONIC BLADDER
     Dosage: 8 MG, 1X/DAY
     Route: 048
     Dates: start: 20151120, end: 20151204
  4. VENLAFAXINE [Concomitant]
     Active Substance: VENLAFAXINE HYDROCHLORIDE
     Dosage: (150 MG AND 37.5 MG), 1X/DAY
     Route: 048
     Dates: start: 2011

REACTIONS (2)
  - Oral candidiasis [Recovered/Resolved]
  - Dry mouth [Recovered/Resolved]

NARRATIVE: CASE EVENT DATE: 20151120
